FAERS Safety Report 5989678-9 (Version None)
Quarter: 2008Q4

REPORT INFORMATION
  Report Type: 
  Country: None (occurrence: None)
  Receive Date: 20081208
  Receipt Date: 20081201
  Transmission Date: 20090506
  Serious: Yes (Life-Threatening, Disabling)
  Sender: FDA-Public Use
  Company Number: 2008GR_BP0743

PATIENT
  Age: 67 Year
  Sex: Female

DRUGS (2)
  1. TERBINAFINE HCL [Suspect]
     Indication: NAIL INFECTION
     Dosage: 250 MG (250 MG, 1 IN 1 D)
     Route: 048
     Dates: start: 20080714
  2. ALENDRONIC ACID (ALENDRONIC ACID) [Concomitant]

REACTIONS (2)
  - HYPERCALCAEMIA [None]
  - MALAISE [None]
